FAERS Safety Report 24714902 (Version 2)
Quarter: 2025Q1

REPORT INFORMATION
  Report Type: Spontaneous
  Country: US (occurrence: US)
  Receive Date: 20241210
  Receipt Date: 20250120
  Transmission Date: 20250409
  Serious: No
  Sender: ROCHE
  Company Number: US-ROCHE-10000147345

PATIENT
  Age: 66 Year
  Sex: Male
  Weight: 74.84 kg

DRUGS (1)
  1. ACTEMRA ACTPEN [Suspect]
     Active Substance: TOCILIZUMAB
     Indication: Rheumatoid arthritis
     Dosage: FREQUENCY: EVERY WEEK
     Route: 058
     Dates: start: 20240912

REACTIONS (2)
  - Rash erythematous [Not Recovered/Not Resolved]
  - Blood electrolytes increased [Not Recovered/Not Resolved]

NARRATIVE: CASE EVENT DATE: 20241003
